FAERS Safety Report 4365697-3 (Version None)
Quarter: 2004Q2

REPORT INFORMATION
  Report Type: 
  Country: None (occurrence: None)
  Receive Date: 20040520
  Receipt Date: 20040510
  Transmission Date: 20050107
  Serious: Yes (Hospitalization, Other)
  Sender: FDA-Public Use
  Company Number: 2003123385

PATIENT
  Age: 77 Year
  Sex: Male

DRUGS (11)
  1. LIPITOR [Suspect]
     Indication: HYPERLIPIDAEMIA
     Dosage: 5 MG DAILY ORAL
     Route: 048
     Dates: start: 20030410, end: 20030908
  2. PRAVASTATIN [Suspect]
     Indication: HYPERLIPIDAEMIA
     Dosage: 5 MG (PER DAY), ORAL
     Route: 048
     Dates: start: 20021227, end: 20030409
  3. FENOTEROL HYDROBROMIDE [Concomitant]
  4. AMBROXOL HYDROCHLORIDE [Concomitant]
  5. LEVOFLOXACIN [Concomitant]
  6. EPRAZINONE HYDROCHLORIDE [Concomitant]
  7. CELESTAMINE TAB [Concomitant]
  8. SUPLATAST TOSILATE [Concomitant]
  9. SENNOSIDE A+B [Concomitant]
  10. OXATOMIDE [Concomitant]
  11. PL GRAN. (CAFFEINE, SALICYLAMIDE, PARACETAMOL, PROMETHAZINE METHYLENE [Concomitant]

REACTIONS (6)
  - APLASTIC ANAEMIA [None]
  - BLOOD CREATINE PHOSPHOKINASE INCREASED [None]
  - C-REACTIVE PROTEIN INCREASED [None]
  - DRUG INEFFECTIVE [None]
  - MYALGIA [None]
  - PANCYTOPENIA [None]
